FAERS Safety Report 5985974-X (Version None)
Quarter: 2008Q4

REPORT INFORMATION
  Report Type: 
  Country: None (occurrence: None)
  Receive Date: 20081205
  Receipt Date: 20081205
  Transmission Date: 20090506
  Serious: Yes (Other)
  Sender: FDA-Public Use
  Company Number: None

PATIENT
  Sex: Female

DRUGS (1)
  1. AUGMENTIN '875' [Suspect]
     Indication: CELLULITIS
     Dosage: 875MG BID PO
     Route: 048
     Dates: start: 20080615, end: 20080622

REACTIONS (4)
  - CHROMATURIA [None]
  - HEPATITIS CHOLESTATIC [None]
  - JAUNDICE [None]
  - PRURITUS [None]
